FAERS Safety Report 21762036 (Version 2)
Quarter: 2022Q4

REPORT INFORMATION
  Report Type: Report from Study
  Country: PR (occurrence: PR)
  Receive Date: 20221221
  Receipt Date: 20221229
  Transmission Date: 20230113
  Serious: Yes (Death)
  Sender: FDA-Public Use
  Company Number: PR-ABBVIE-4245117

PATIENT
  Sex: Male
  Weight: 65.77 kg

DRUGS (1)
  1. VENCLEXTA [Suspect]
     Active Substance: VENETOCLAX
     Indication: Acute myeloid leukaemia
     Dosage: LAST ADMIN DATE 2022
     Route: 048
     Dates: start: 202211

REACTIONS (3)
  - Cardiopulmonary failure [Fatal]
  - Bacteraemia [Fatal]
  - Septic shock [Fatal]
